FAERS Safety Report 8523388-9 (Version None)
Quarter: 2012Q3

REPORT INFORMATION
  Report Type: 
  Country: None (occurrence: None)
  Receive Date: 20120720
  Receipt Date: 20120712
  Transmission Date: 20120928
  Serious: Yes (Hospitalization)
  Sender: FDA-Public Use
  Company Number: US-US-EMD SERONO, INC.-7147501

PATIENT
  Sex: Female

DRUGS (4)
  1. NORVASC [Concomitant]
     Indication: BLOOD PRESSURE
  2. REBIF [Suspect]
     Indication: MULTIPLE SCLEROSIS
     Route: 058
     Dates: start: 20110922
  3. LISINOPRIL [Concomitant]
     Indication: BLOOD PRESSURE
  4. METOPROLOL SUCCINATE [Concomitant]
     Indication: BLOOD PRESSURE

REACTIONS (8)
  - MULTIPLE SCLEROSIS RELAPSE [None]
  - INJECTION SITE ERYTHEMA [None]
  - CENTRAL NERVOUS SYSTEM LESION [None]
  - HEADACHE [None]
  - LOSS OF CONSCIOUSNESS [None]
  - BLOOD POTASSIUM DECREASED [None]
  - MUSCULAR WEAKNESS [None]
  - INFLUENZA LIKE ILLNESS [None]
